FAERS Safety Report 4751291-9 (Version None)
Quarter: 2005Q3

REPORT INFORMATION
  Report Type: 
  Country: None (occurrence: None)
  Receive Date: 20050822
  Receipt Date: 20050811
  Transmission Date: 20060218
  Serious: Yes (Hospitalization)
  Sender: FDA-Public Use
  Company Number: 233565K05USA

PATIENT
  Sex: Female

DRUGS (2)
  1. REBIF [Suspect]
     Indication: MULTIPLE SCLEROSIS
     Dosage: 44 MCG, 3 IN 1 WEEKS
     Dates: start: 20040201, end: 20050201
  2. NOVANTRONE [Suspect]
     Indication: MULTIPLE SCLEROSIS
     Dosage: 22 MCG
     Dates: start: 20020101

REACTIONS (4)
  - BLOOD IMMUNOGLOBULIN G DECREASED [None]
  - GASTROENTERITIS VIRAL [None]
  - UROSEPSIS [None]
  - WHITE BLOOD CELL COUNT DECREASED [None]
